FAERS Safety Report 14624387 (Version 1)
Quarter: 2018Q1

REPORT INFORMATION
  Report Type: Spontaneous
  Country: US (occurrence: US)
  Receive Date: 20180310
  Receipt Date: 20180310
  Transmission Date: 20180509
  Serious: Yes (Other)
  Sender: FDA-Public Use
  Company Number: None

PATIENT
  Age: 34 Year
  Sex: Female
  Weight: 49.9 kg

DRUGS (12)
  1. AMITIZA [Concomitant]
     Active Substance: LUBIPROSTONE
  2. CIMITIDINE [Concomitant]
  3. PERCOCET [Concomitant]
     Active Substance: ACETAMINOPHEN\OXYCODONE HYDROCHLORIDE
  4. ROBAXIN [Concomitant]
     Active Substance: METHOCARBAMOL
  5. MELOXICAM. [Concomitant]
     Active Substance: MELOXICAM
  6. ATORVASTATIN [Concomitant]
     Active Substance: ATORVASTATIN
  7. CLOBETASOL [Concomitant]
     Active Substance: CLOBETASOL
  8. GABAPENTIN. [Concomitant]
     Active Substance: GABAPENTIN
  9. FLECTOR [Concomitant]
     Active Substance: DICLOFENAC EPOLAMINE
  10. MIDODRINE [Concomitant]
     Active Substance: MIDODRINE
  11. MIRENA [Suspect]
     Active Substance: LEVONORGESTREL
  12. BIOTIN [Concomitant]
     Active Substance: BIOTIN

REACTIONS (5)
  - Hypotension [None]
  - Prescribed overdose [None]
  - Weight increased [None]
  - Loss of consciousness [None]
  - Weight decreased [None]

NARRATIVE: CASE EVENT DATE: 20170601
